FAERS Safety Report 15907787 (Version 2)
Quarter: 2019Q4

REPORT INFORMATION
  Report Type: Report from Study
  Country: US (occurrence: US)
  Receive Date: 20190204
  Receipt Date: 20191017
  Transmission Date: 20200122
  Serious: Yes (Hospitalization)
  Sender: FDA-Public Use
  Company Number: US-GILEAD-2018-0381210

PATIENT
  Age: 65 Year
  Sex: Female
  Weight: 82.7 kg

DRUGS (18)
  1. HEPARIN [Concomitant]
     Active Substance: HEPARIN SODIUM
     Dosage: 1,ML,THREE TIMES DAILY
     Route: 058
     Dates: start: 20181022
  2. PRAMOXINE/HYDROCORTISONE [Concomitant]
     Dosage: 4,G,FOUR TIMES DAILY
     Route: 054
     Dates: start: 20181219, end: 20181222
  3. ONDANSETRON [Concomitant]
     Active Substance: ONDANSETRON
  4. TRAZODONE [Concomitant]
     Active Substance: TRAZODONE HYDROCHLORIDE
     Dosage: 50,MG,OTHER
     Route: 048
     Dates: start: 20180823
  5. GABAPENTIN. [Concomitant]
     Active Substance: GABAPENTIN
     Dosage: 600,MG,TWICE DAILY
     Route: 048
     Dates: start: 20111201
  6. LORAZEPAM. [Concomitant]
     Active Substance: LORAZEPAM
     Dosage: 0.5,MG,OTHER
     Route: 048
     Dates: start: 20111201
  7. TRAMADOL. [Concomitant]
     Active Substance: TRAMADOL
     Dosage: 100,MG,OTHER
     Route: 048
     Dates: start: 20181216, end: 20181222
  8. HYDROMORPHONE [Concomitant]
     Active Substance: HYDROMORPHONE
     Dosage: 0.5,MG,OTHER
     Route: 041
     Dates: start: 20181216, end: 20181218
  9. CYCLOPHOSPHAMIDE. [Suspect]
     Active Substance: CYCLOPHOSPHAMIDE
     Indication: BONE MARROW CONDITIONING REGIMEN
     Dosage: 500 MG/M2, QD
     Route: 042
     Dates: start: 20181017, end: 20181019
  10. POTASSIUM CHLORIDE. [Concomitant]
     Active Substance: POTASSIUM CHLORIDE
  11. ZOLPIDEM [Concomitant]
     Active Substance: ZOLPIDEM TARTRATE
     Dosage: 10,MG,OTHER
     Route: 048
     Dates: start: 20140201
  12. VENLAFAXINE [Concomitant]
     Active Substance: VENLAFAXINE HYDROCHLORIDE
     Dosage: 75,MG,DAILY
     Route: 048
     Dates: start: 20180801
  13. FLUDARABINE [Suspect]
     Active Substance: FLUDARABINE PHOSPHATE
     Indication: BONE MARROW CONDITIONING REGIMEN
     Dosage: 30 MG/M2, QD
     Route: 042
     Dates: start: 20181017, end: 20181019
  14. LOPERAMIDE HYDROCHLORIDE;SIMETICONE [Concomitant]
     Active Substance: DIMETHICONE\LOPERAMIDE HYDROCHLORIDE
     Dosage: 2-1250,MG,AS NECESSARY
     Route: 048
     Dates: start: 20181203
  15. SODIUM CHLORIDE. [Concomitant]
     Active Substance: SODIUM CHLORIDE
     Dosage: 500,ML,OTHER
     Route: 041
     Dates: start: 20181218, end: 20181218
  16. AXICABTAGENE CILOLEUCEL [Suspect]
     Active Substance: AXICABTAGENE CILOLEUCEL
     Indication: B-CELL LYMPHOMA
     Dosage: UNK UNK, ONCE
     Route: 042
     Dates: start: 20181023, end: 20181023
  17. ACYCLOVIR [ACICLOVIR] [Concomitant]
     Active Substance: ACYCLOVIR
  18. METHYLPHENIDATE. [Concomitant]
     Active Substance: METHYLPHENIDATE
     Dosage: 20,MG,TWICE DAILY
     Route: 048
     Dates: start: 20111201

REACTIONS (2)
  - Clostridium test positive [Recovered/Resolved]
  - Kidney infection [Recovered/Resolved]

NARRATIVE: CASE EVENT DATE: 20181216
